FAERS Safety Report 11686356 (Version 1)
Quarter: 2015Q4

REPORT INFORMATION
  Report Type: Spontaneous
  Country: US (occurrence: US)
  Receive Date: 20151030
  Receipt Date: 20151030
  Transmission Date: 20160304
  Serious: Yes (Hospitalization, Other)
  Sender: FDA-Public Use
  Company Number: US-SA-2015SA166532

PATIENT
  Age: 84 Year
  Sex: Female

DRUGS (1)
  1. LOVENOX [Suspect]
     Active Substance: ENOXAPARIN SODIUM
     Dosage: START DATE: ABOUT A MONTH AGO,END DATE:ABOUT 3 WEEKS AGO?DOSE:2 SHOTS
     Route: 065

REACTIONS (4)
  - Haemorrhage [Unknown]
  - Hypotension [Unknown]
  - Malaise [Unknown]
  - Unevaluable event [Unknown]
